FAERS Safety Report 7298547-6 (Version None)
Quarter: 2011Q1

REPORT INFORMATION
  Report Type: 
  Country: None (occurrence: None)
  Receive Date: 20110214
  Receipt Date: 20110214
  Transmission Date: 20110831
  Serious: No
  Sender: FDA-Public Use
  Company Number: None

PATIENT
  Sex: Female
  Weight: 82.1011 kg

DRUGS (1)
  1. LEVOTHYROXINE SODIUM [Suspect]
     Dosage: 75 MCG DAILY PO
     Route: 048
     Dates: end: 20080430

REACTIONS (2)
  - PRODUCT SUBSTITUTION ISSUE [None]
  - FEELING ABNORMAL [None]
